FAERS Safety Report 9874680 (Version 3)
Quarter: 2014Q1

REPORT INFORMATION
  Report Type: Spontaneous
  Country: GB (occurrence: GB)
  Receive Date: 20140206
  Receipt Date: 20140211
  Transmission Date: 20141002
  Serious: Yes (Other)
  Sender: FDA-Public Use
  Company Number: CHPA2014GB000684

PATIENT
  Age: 45 Year
  Sex: Female

DRUGS (11)
  1. TRANSDERM SCOP [Suspect]
     Indication: SALIVARY HYPERSECRETION
     Dosage: 1 DF, Q72H
     Route: 062
  2. TRANSDERM SCOP [Suspect]
     Indication: OFF LABEL USE
  3. CARBAMAZEPINE [Concomitant]
     Dosage: 200 MG, BID
  4. MOVICOL [Concomitant]
     Dosage: 0.5 DF, PRN
  5. VITAMIN B [Concomitant]
     Dosage: 2 DF, TID
  6. DOMPERIDONE [Concomitant]
     Dosage: 10 ML, TID
  7. FOLIC ACID [Concomitant]
  8. LANZOPRAZOL [Concomitant]
     Dosage: UNK
  9. PARACETAMOL [Concomitant]
     Dosage: 1 G, PRN
  10. CYCLIZINE [Concomitant]
     Dosage: 50 MG, TID
  11. FRESUBIN ENERGY FIBRE [Concomitant]

REACTIONS (2)
  - Application site inflammation [Recovering/Resolving]
  - Erythema [Recovering/Resolving]
